FAERS Safety Report 5078543-X (Version None)
Quarter: 2006Q3

REPORT INFORMATION
  Report Type: 
  Country: None (occurrence: None)
  Receive Date: 20060808
  Receipt Date: 20060731
  Transmission Date: 20061208
  Serious: Yes (Hospitalization)
  Sender: FDA-Public Use
  Company Number: 2006BI010801

PATIENT
  Age: 35 Year
  Sex: Female

DRUGS (1)
  1. AVONEX [Suspect]
     Indication: MULTIPLE SCLEROSIS
     Dosage: 30  UG; QW; IM
     Route: 030
     Dates: start: 20050908, end: 20050901

REACTIONS (6)
  - BODY TEMPERATURE INCREASED [None]
  - CALCINOSIS [None]
  - INTERVERTEBRAL DISC PROTRUSION [None]
  - MONOPLEGIA [None]
  - NAUSEA [None]
  - ROAD TRAFFIC ACCIDENT [None]
